FAERS Safety Report 21530124 (Version 2)
Quarter: 2022Q4

REPORT INFORMATION
  Report Type: Report from Study
  Country: ZA (occurrence: ZA)
  Receive Date: 20221031
  Receipt Date: 20221118
  Transmission Date: 20230113
  Serious: Yes (Death)
  Sender: FDA-Public Use
  Company Number: ZA-JNJFOC-20221034728

PATIENT

DRUGS (4)
  1. CABOTEGRAVIR [Suspect]
     Active Substance: CABOTEGRAVIR
     Indication: HIV infection
     Dosage: 600 MG
     Route: 030
     Dates: start: 20211119
  2. ARTESUNATE [Concomitant]
     Active Substance: ARTESUNATE
     Indication: Product used for unknown indication
     Dosage: 120 MG
     Route: 042
     Dates: start: 20220917, end: 20220919
  3. ARTEMETHER [Concomitant]
     Active Substance: ARTEMETHER
     Indication: Product used for unknown indication
     Dosage: 160 MG
     Route: 048
     Dates: start: 20220920, end: 20220922
  4. LUMEFANTRINE [Concomitant]
     Active Substance: LUMEFANTRINE
     Indication: Product used for unknown indication
     Dosage: 960 MG
     Route: 048
     Dates: start: 20220920, end: 20220922

REACTIONS (1)
  - Death [Fatal]
